FAERS Safety Report 5415569-8 (Version None)
Quarter: 2007Q3

REPORT INFORMATION
  Report Type: 
  Country: None (occurrence: None)
  Receive Date: 20070813
  Receipt Date: 20070803
  Transmission Date: 20080115
  Serious: Yes (Other)
  Sender: FDA-Public Use
  Company Number: 2006-05-1957

PATIENT
  Age: 4 Year
  Sex: Male

DRUGS (1)
  1. DESLORATADINE [Suspect]
     Indication: DRUG USE FOR UNKNOWN INDICATION

REACTIONS (4)
  - CHEST PAIN [None]
  - HALLUCINATION [None]
  - NAUSEA [None]
  - TACHYCARDIA [None]
